FAERS Safety Report 7967194-2 (Version None)
Quarter: 2011Q4

REPORT INFORMATION
  Report Type: 
  Country: None (occurrence: None)
  Receive Date: 20111209
  Receipt Date: 20111206
  Transmission Date: 20120403
  Serious: Yes (Other)
  Sender: FDA-Public Use
  Company Number: US-AMGEN-USASP2011064835

PATIENT
  Sex: Male

DRUGS (1)
  1. XGEVA [Suspect]
     Indication: METASTASES TO BONE
     Dosage: 120 MG, QMO
     Dates: start: 20110101, end: 20110101

REACTIONS (3)
  - ENDODONTIC PROCEDURE [None]
  - OSTEONECROSIS OF JAW [None]
  - PAIN IN JAW [None]
